FAERS Safety Report 7526129-7 (Version None)
Quarter: 2011Q2

REPORT INFORMATION
  Report Type: 
  Country: None (occurrence: None)
  Receive Date: 20110606
  Receipt Date: 20110523
  Transmission Date: 20111010
  Serious: Yes (Life-Threatening, Hospitalization)
  Sender: FDA-Public Use
  Company Number: JP-TYCO HEALTHCARE/MALLINCKRODT-T201101150

PATIENT
  Sex: Male

DRUGS (3)
  1. METHADONE HCL [Suspect]
     Indication: CANCER PAIN
     Dosage: 15 MG, QD
     Route: 048
     Dates: start: 20110516
  2. METHADONE HCL [Suspect]
     Dosage: 30 MG, QD
     Route: 048
     Dates: start: 20110509, end: 20110515
  3. METHADONE HCL [Suspect]
     Dosage: 45 MG, QD
     Route: 048
     Dates: start: 20110422, end: 20110508

REACTIONS (2)
  - NEOPLASM PROGRESSION [None]
  - PROSTATE CANCER [None]
